FAERS Safety Report 18100411 (Version 1)
Quarter: 2020Q3

REPORT INFORMATION
  Report Type: Spontaneous
  Country: US (occurrence: US)
  Receive Date: 20200731
  Receipt Date: 20200731
  Transmission Date: 20201103
  Serious: Yes (Hospitalization)
  Sender: FDA-Public Use
  Company Number: US-ACELLA PHARMACEUTICALS, LLC-2088011

PATIENT
  Age: 49 Year
  Sex: Female
  Weight: 75.46 kg

DRUGS (4)
  1. NP THYROID [Suspect]
     Active Substance: LEVOTHYROXINE\LIOTHYRONINE
     Indication: HYPOTHYROIDISM
     Dates: end: 20190906
  2. PROGESTERONE. [Concomitant]
     Active Substance: PROGESTERONE
     Route: 065
  3. MELOXICAM. [Concomitant]
     Active Substance: MELOXICAM
     Route: 065
  4. GABAPENTIN. [Concomitant]
     Active Substance: GABAPENTIN
     Route: 065

REACTIONS (6)
  - Atrial fibrillation [Recovered/Resolved]
  - Sinusitis [Recovered/Resolved]
  - Fatigue [Recovered/Resolved]
  - Cardiac ablation [Recovered/Resolved]
  - Heart rate increased [Recovered/Resolved]
  - Cardioversion [Recovered/Resolved]

NARRATIVE: CASE EVENT DATE: 201909
